FAERS Safety Report 8155542-2 (Version None)
Quarter: 2012Q1

REPORT INFORMATION
  Report Type: 
  Country: None (occurrence: None)
  Receive Date: 20120222
  Receipt Date: 20120213
  Transmission Date: 20120608
  Serious: Yes (Life-Threatening, Hospitalization)
  Sender: FDA-Public Use
  Company Number: US-CELGENEUS-163-21880-12011927

PATIENT
  Sex: Male
  Weight: 113.5 kg

DRUGS (28)
  1. GLYBURIDE [Concomitant]
     Indication: TYPE 2 DIABETES MELLITUS
     Dosage: 2 TABLET
     Route: 048
     Dates: start: 20061025
  2. DEXAMETHASONE [Concomitant]
     Route: 065
  3. ALLEGRA [Concomitant]
     Route: 065
  4. PROZAC [Concomitant]
     Dosage: 10 MILLIGRAM
     Route: 048
  5. ACTOS [Concomitant]
     Route: 065
  6. MULTI-VITAMINS [Concomitant]
     Route: 065
  7. IRON [Concomitant]
     Route: 065
  8. ASPIRIN [Concomitant]
     Dosage: 325 MILLIGRAM
     Route: 048
  9. SIMVASTATIN [Concomitant]
     Dosage: 20 MILLIGRAM
     Route: 048
     Dates: start: 20101230
  10. COMPAZINE [Concomitant]
     Route: 065
  11. CALCIUM +D [Concomitant]
     Dosage: 600-400MG-UNIT
     Route: 048
     Dates: start: 20120124
  12. TAMSULOSIN HCL [Concomitant]
     Dosage: .4 MILLIGRAM
     Route: 048
     Dates: start: 20120124
  13. XANAX [Concomitant]
     Dosage: 1/2 TO 1 TABLET
     Route: 048
  14. XYZAL [Concomitant]
     Dosage: 5 MILLIGRAM
     Route: 048
  15. AMBIEN [Concomitant]
     Dosage: 1/2 TABLET
     Route: 048
     Dates: start: 20080908
  16. FLAGYL [Concomitant]
     Dosage: 500 MILLIGRAM
     Route: 048
     Dates: start: 20120124
  17. JANUVIA [Concomitant]
     Indication: TYPE 2 DIABETES MELLITUS
     Dosage: 50 MILLIGRAM
     Route: 048
     Dates: start: 20110523
  18. LANTUS [Concomitant]
     Indication: TYPE 2 DIABETES MELLITUS
     Dosage: 100UNIT/ML; 60 UNITS A.M., 60 UNITS P.M.
     Route: 058
  19. ZOMETA [Concomitant]
     Route: 065
  20. VITAMIN B-12 [Concomitant]
     Route: 065
  21. POTASSIUM CHLORIDE [Concomitant]
     Indication: ROUTINE HEALTH MAINTENANCE
     Dosage: 20 MILLIEQUIVALENTS
     Route: 048
     Dates: start: 20111222
  22. REVLIMID [Suspect]
     Indication: MULTIPLE MYELOMA
     Dosage: 10 MILLIGRAM
     Route: 048
     Dates: start: 20110901, end: 20120112
  23. VITAMIN D [Concomitant]
     Route: 065
  24. FLEXERIL [Concomitant]
     Route: 065
  25. RESTASIS [Concomitant]
     Route: 047
  26. PRILOSEC [Concomitant]
     Dosage: 20 MILLIGRAM
     Route: 048
     Dates: start: 20061212
  27. LISINOPRIL [Concomitant]
     Route: 065
  28. OXYBUTYNIN [Concomitant]
     Route: 065

REACTIONS (1)
  - ATRIAL FIBRILLATION [None]
